FAERS Safety Report 7827772-8 (Version None)
Quarter: 2011Q4

REPORT INFORMATION
  Report Type: 
  Country: None (occurrence: None)
  Receive Date: 20111020
  Receipt Date: 20111014
  Transmission Date: 20120403
  Serious: Yes (Disabling)
  Sender: FDA-Public Use
  Company Number: MX-SANOFI-AVENTIS-2011SA068021

PATIENT
  Age: 64 Year
  Sex: Female
  Weight: 65 kg

DRUGS (5)
  1. PREDNISONE [Concomitant]
     Indication: RHEUMATOID ARTHRITIS
     Dates: start: 20010101, end: 20070101
  2. ARAVA [Suspect]
     Route: 048
     Dates: start: 20090101
  3. CALCORT [Suspect]
     Indication: RHEUMATOID ARTHRITIS
     Route: 048
     Dates: start: 20050101, end: 20110401
  4. ARAVA [Suspect]
     Indication: RHEUMATOID ARTHRITIS
     Route: 048
     Dates: start: 20010101, end: 20090101
  5. METHOTREXATE [Concomitant]
     Indication: RHEUMATOID ARTHRITIS
     Dates: start: 20010101, end: 20070101

REACTIONS (5)
  - ARTHRALGIA [None]
  - TYPE 2 DIABETES MELLITUS [None]
  - MALAISE [None]
  - NAUSEA [None]
  - RASH [None]
